FAERS Safety Report 10370454 (Version 1)
Quarter: 2014Q3

REPORT INFORMATION
  Report Type: Spontaneous
  Country: US (occurrence: None)
  Receive Date: 20140807
  Receipt Date: 20140807
  Transmission Date: 20150326
  Serious: Yes (Hospitalization)
  Sender: FDA-Public Use
  Company Number: None

PATIENT
  Age: 33 Year
  Sex: Female
  Weight: 79.37 kg

DRUGS (1)
  1. CISPLATIN. [Suspect]
     Active Substance: CISPLATIN

REACTIONS (12)
  - Anaemia of chronic disease [None]
  - Rash pruritic [None]
  - Chills [None]
  - Pyrexia [None]
  - Staphylococcus test positive [None]
  - Hypersensitivity [None]
  - Iron deficiency anaemia [None]
  - Bacteraemia [None]
  - Pyelonephritis [None]
  - Upper respiratory tract infection [None]
  - Flank pain [None]
  - Fatigue [None]

NARRATIVE: CASE EVENT DATE: 20140402
